FAERS Safety Report 5700183-7 (Version None)
Quarter: 2008Q2

REPORT INFORMATION
  Report Type: 
  Country: None (occurrence: None)
  Receive Date: 20080409
  Receipt Date: 20080328
  Transmission Date: 20081010
  Serious: Yes (Death, Hospitalization, Other)
  Sender: FDA-Public Use
  Company Number: US-JNJFOC-20080307040

PATIENT
  Age: 69 Year
  Sex: Male
  Weight: 82 kg

DRUGS (14)
  1. TOPAMAX [Suspect]
     Indication: DRUG USE FOR UNKNOWN INDICATION
  2. IRINOTECAN HYDROCHLORIDE [Suspect]
     Indication: GLIOBLASTOMA MULTIFORME
     Dosage: 125 MG/M2 ON DAYS 1 AND 15 OF 28-DAY CYCLE
     Route: 042
  3. BEVACIZUMAB [Suspect]
     Indication: GLIOBLASTOMA MULTIFORME
     Dosage: 10 MG/KG ON DAYS 1 AND 15 OF 28-DAY CYCLE
     Route: 042
  4. ENOXAPARIN SODIUM [Suspect]
     Indication: DRUG USE FOR UNKNOWN INDICATION
  5. FLUDROCORTISONE ACETATE [Suspect]
     Indication: DRUG USE FOR UNKNOWN INDICATION
  6. METFORMIN HCL [Suspect]
     Indication: DRUG USE FOR UNKNOWN INDICATION
  7. OXYCODONE HCL [Suspect]
     Indication: DRUG USE FOR UNKNOWN INDICATION
  8. OXYCONTIN [Suspect]
     Indication: DRUG USE FOR UNKNOWN INDICATION
  9. PAXIL [Suspect]
     Indication: DRUG USE FOR UNKNOWN INDICATION
  10. PREDNISONE [Suspect]
     Indication: DRUG USE FOR UNKNOWN INDICATION
  11. PREVACID [Suspect]
     Indication: DRUG USE FOR UNKNOWN INDICATION
  12. SYNTHROID [Suspect]
     Indication: DRUG USE FOR UNKNOWN INDICATION
  13. WARFARIN SODIUM [Suspect]
     Indication: DRUG USE FOR UNKNOWN INDICATION
  14. DECADRON [Concomitant]

REACTIONS (13)
  - BACK PAIN [None]
  - CEREBRAL HAEMORRHAGE [None]
  - CEREBRAL ISCHAEMIA [None]
  - CONFUSIONAL STATE [None]
  - DYSARTHRIA [None]
  - ENCEPHALOPATHY [None]
  - HEADACHE [None]
  - MENTAL STATUS CHANGES [None]
  - NEUROPATHY PERIPHERAL [None]
  - SOMNOLENCE [None]
  - SPEECH DISORDER [None]
  - THROMBOSIS [None]
  - WEIGHT DECREASED [None]
